FAERS Safety Report 17153930 (Version 1)
Quarter: 2019Q4

REPORT INFORMATION
  Report Type: Report from Study
  Country: US (occurrence: US)
  Receive Date: 20191213
  Receipt Date: 20191213
  Transmission Date: 20200122
  Serious: Yes (Hospitalization, Other)
  Sender: FDA-Public Use
  Company Number: US-BAUSCH-BL-2019-064652

PATIENT
  Sex: Male

DRUGS (1)
  1. XIFAXAN [Suspect]
     Active Substance: RIFAXIMIN
     Indication: LIVER DISORDER
     Dosage: THERPAY START DATE: MANY YEARS AGO
     Route: 048

REACTIONS (3)
  - Shunt occlusion [Unknown]
  - Portal shunt procedure [Unknown]
  - Device dislocation [Unknown]

NARRATIVE: CASE EVENT DATE: 2018
